FAERS Safety Report 12474607 (Version 1)
Quarter: 2016Q2

REPORT INFORMATION
  Report Type: Spontaneous
  Country: US (occurrence: None)
  Receive Date: 20160616
  Receipt Date: 20160616
  Transmission Date: 20160815
  Serious: No
  Sender: FDA-Public Use
  Company Number: None

PATIENT
  Sex: Female
  Weight: 71.67 kg

DRUGS (1)
  1. IMATINIB 400MG SUN PHARMACEUTICALS [Suspect]
     Active Substance: IMATINIB
     Indication: MYELOID LEUKAEMIA
     Route: 048
     Dates: start: 20160328

REACTIONS (4)
  - Back pain [None]
  - Swelling face [None]
  - Pain [None]
  - Muscle spasms [None]
